FAERS Safety Report 5745222-2 (Version None)
Quarter: 2008Q2

REPORT INFORMATION
  Report Type: 
  Country: None (occurrence: None)
  Receive Date: 20080521
  Receipt Date: 20080515
  Transmission Date: 20081010
  Serious: Yes (Other)
  Sender: FDA-Public Use
  Company Number: B0360454A

PATIENT
  Age: 51 Year
  Sex: Female

DRUGS (8)
  1. PAROXETINE HCL [Suspect]
     Route: 065
     Dates: start: 20010523
  2. PAROXETINE HCL [Suspect]
     Route: 065
  3. LEVOCETIRIZINE [Concomitant]
     Indication: URTICARIA
  4. MIZOLASTINE [Concomitant]
     Dates: start: 20020701
  5. PARIET [Concomitant]
  6. FEXOFENADINE [Concomitant]
  7. ACETAMINOPHEN W/ CODEINE [Concomitant]
  8. NAPROSYN [Concomitant]

REACTIONS (12)
  - ARTHRALGIA [None]
  - DIARRHOEA [None]
  - DIZZINESS [None]
  - DRUG WITHDRAWAL SYNDROME [None]
  - HYPERHIDROSIS [None]
  - INSOMNIA [None]
  - LOSS OF LIBIDO [None]
  - MYALGIA [None]
  - NIGHTMARE [None]
  - PARAESTHESIA [None]
  - SUICIDAL IDEATION [None]
  - VERTIGO [None]
